FAERS Safety Report 5370698-2 (Version None)
Quarter: 2007Q2

REPORT INFORMATION
  Report Type: 
  Country: None (occurrence: None)
  Receive Date: 20070622
  Receipt Date: 20070614
  Transmission Date: 20071010
  Serious: Yes (Hospitalization)
  Sender: FDA-Public Use
  Company Number: GXKR2007PH05165

PATIENT

DRUGS (5)
  1. RIFAMPICIN [Suspect]
     Dosage: ORAL
     Route: 048
  2. ISONIAZID [Suspect]
  3. PYRAZINAMIDE [Suspect]
     Indication: TUBERCULOSIS
  4. ETHAMBUTOL           (NGX)(ETHAMBUTOL) [Suspect]
     Indication: TUBERCULOSIS
  5. COXIBS                      (NO INGREDIENTS/SUBSTANCES) [Concomitant]

REACTIONS (3)
  - DIARRHOEA [None]
  - VOMITING [None]
  - WEIGHT DECREASED [None]
